FAERS Safety Report 7301467-1 (Version None)
Quarter: 2011Q1

REPORT INFORMATION
  Report Type: 
  Country: None (occurrence: None)
  Receive Date: 20110218
  Receipt Date: 20110203
  Transmission Date: 20110831
  Serious: Yes (Other)
  Sender: FDA-Public Use
  Company Number: DE-BAUSCH-2011BL000730

PATIENT
  Age: 4 Year

DRUGS (1)
  1. ZYKLOLAT EDO AUGENTROPFEN [Suspect]
     Indication: PRODUCT USED FOR UNKNOWN INDICATION
     Route: 047
     Dates: start: 20090101

REACTIONS (4)
  - HALLUCINATION [None]
  - TIC [None]
  - CIRCULATORY COLLAPSE [None]
  - DRUG EFFECT PROLONGED [None]
